FAERS Safety Report 5171324-8 (Version None)
Quarter: 2006Q4

REPORT INFORMATION
  Report Type: 
  Country: None (occurrence: None)
  Receive Date: 20061213
  Receipt Date: 20060110
  Transmission Date: 20070319
  Serious: Yes (Hospitalization, Other)
  Sender: FDA-Public Use
  Company Number: US-AMGEN-US164322

PATIENT
  Sex: Male
  Weight: 69.5 kg

DRUGS (3)
  1. ENBREL [Suspect]
     Indication: PSORIATIC ARTHROPATHY
     Dates: start: 20040524, end: 20050601
  2. ZOCOR [Concomitant]
  3. VICODIN [Concomitant]
     Dates: start: 20040701

REACTIONS (1)
  - MENINGOCOCCAL INFECTION [None]
